FAERS Safety Report 4368703-5 (Version None)
Quarter: 2004Q2

REPORT INFORMATION
  Report Type: 
  Country: None (occurrence: None)
  Receive Date: 20040525
  Receipt Date: 20040322
  Transmission Date: 20050107
  Serious: Yes (Death, Other)
  Sender: FDA-Public Use
  Company Number: 2004194839JP

PATIENT
  Age: 63 Year
  Sex: Male

DRUGS (2)
  1. CAMPTOSAR [Suspect]
     Indication: SMALL CELL LUNG CANCER STAGE UNSPECIFIED
     Dosage: 100 MG, CYCLIC, DAY 1 AND 9, IV DRIP
     Route: 041
     Dates: start: 20031222, end: 20031230
  2. CISPLATIN [Concomitant]

REACTIONS (8)
  - BONE MARROW DEPRESSION [None]
  - DIARRHOEA [None]
  - DISSEMINATED INTRAVASCULAR COAGULATION [None]
  - DRUG INEFFECTIVE [None]
  - ENTEROCOLITIS INFECTIOUS [None]
  - PANCYTOPENIA [None]
  - SEPSIS [None]
  - STAPHYLOCOCCAL INFECTION [None]
